FAERS Safety Report 5945234-X (Version None)
Quarter: 2008Q4

REPORT INFORMATION
  Report Type: 
  Country: None (occurrence: None)
  Receive Date: 20081107
  Receipt Date: 20081103
  Transmission Date: 20090506
  Serious: Yes (Hospitalization)
  Sender: FDA-Public Use
  Company Number: SG-TEVA-179932ISR

PATIENT
  Sex: Male

DRUGS (9)
  1. FLUOROURACIL [Suspect]
     Indication: COLORECTAL CANCER
     Route: 040
     Dates: start: 20080922
  2. FLUOROURACIL [Suspect]
     Route: 040
     Dates: start: 20080922
  3. FOLINIC ACID [Suspect]
     Indication: COLORECTAL CANCER
     Route: 042
     Dates: start: 20080922
  4. ATENOLOL [Suspect]
     Indication: HYPERTENSION
     Dates: start: 19800101
  5. IRINOTECAN HYDROCHLORIDE [Suspect]
     Indication: COLORECTAL CANCER
     Route: 042
     Dates: start: 20080922
  6. SUNITINIB (BLINDED THERAPY) [Suspect]
     Indication: COLORECTAL CANCER
     Route: 048
     Dates: start: 20080922
  7. DEXAMETHASONE [Concomitant]
  8. SIMVASTATIN [Concomitant]
     Dates: start: 19800101
  9. FELODIPINE [Concomitant]
     Indication: HYPERTENSION
     Dates: start: 19800101

REACTIONS (2)
  - HYPOTENSION [None]
  - LUNG ABSCESS [None]
